FAERS Safety Report 9914953 (Version 1)
Quarter: 2014Q1

REPORT INFORMATION
  Report Type: Spontaneous
  Country: SA (occurrence: SA)
  Receive Date: 20140220
  Receipt Date: 20140220
  Transmission Date: 20141002
  Serious: Yes (Hospitalization, Other)
  Sender: FDA-Public Use
  Company Number: PHHY2014SA014099

PATIENT
  Age: 27 Year
  Sex: Male

DRUGS (5)
  1. TOBRAMYCIN [Suspect]
     Indication: CONJUNCTIVITIS
     Route: 047
  2. AMOXICILLIN [Suspect]
  3. CLAVULANIC ACID [Suspect]
  4. PENICILLIN NOS [Concomitant]
     Dosage: 0.5 MIU, EVERY 6 HOURS
  5. GENTAMICIN [Concomitant]

REACTIONS (15)
  - Endophthalmitis [Unknown]
  - Hypopyon [Unknown]
  - Vitritis [Unknown]
  - Ocular hyperaemia [Unknown]
  - Photophobia [Unknown]
  - Visual acuity reduced [Unknown]
  - Keratitis [Unknown]
  - Corneal oedema [Not Recovered/Not Resolved]
  - Retinal exudates [Unknown]
  - Iris adhesions [Unknown]
  - Atrophy of globe [Unknown]
  - Blindness [Unknown]
  - Cataract [Unknown]
  - Disease progression [Unknown]
  - Drug ineffective [Unknown]
